FAERS Safety Report 12390763 (Version 4)
Quarter: 2017Q1

REPORT INFORMATION
  Report Type: Spontaneous
  Country: BR (occurrence: BR)
  Receive Date: 20160520
  Receipt Date: 20170111
  Transmission Date: 20170428
  Serious: Yes (Hospitalization)
  Sender: FDA-Public Use
  Company Number: BR-DSJP-DSE-2016-116525

PATIENT

DRUGS (6)
  1. SCITALAX   10 MG COM REV CT BL AL PLAS INC X 28 [Suspect]
     Active Substance: ESCITALOPRAM OXALATE
     Indication: ANXIETY
     Dosage: 10 MG, QD
     Route: 048
     Dates: start: 2015, end: 20160510
  2. HIGROTON [Concomitant]
     Active Substance: CHLORTHALIDONE
     Indication: HYPERTENSION
     Dosage: 0.5 DF, UNK
     Route: 048
  3. BENICAR [Suspect]
     Active Substance: OLMESARTAN MEDOXOMIL
     Indication: HYPERTENSION
     Dosage: 40 MG, QD
     Route: 048
  4. SCITALAX   10 MG COM REV CT BL AL PLAS INC X 28 [Suspect]
     Active Substance: ESCITALOPRAM OXALATE
     Indication: DEPRESSION
  5. LANTUS [Concomitant]
     Active Substance: INSULIN GLARGINE
     Indication: DIABETES MELLITUS
     Dosage: UNK, BID
  6. JANUMET [Concomitant]
     Active Substance: METFORMIN HYDROCHLORIDE\SITAGLIPTIN PHOSPHATE
     Indication: DIABETES MELLITUS
     Dosage: 50/1000 MG, BID
     Route: 048

REACTIONS (12)
  - Facial bones fracture [Recovered/Resolved]
  - Weight increased [Recovered/Resolved]
  - Sciatic nerve injury [Recovered/Resolved with Sequelae]
  - Insomnia [Recovered/Resolved]
  - Urinary incontinence [Not Recovered/Not Resolved]
  - Rib fracture [Recovered/Resolved]
  - Spinal pain [Not Recovered/Not Resolved]
  - Fall [Recovered/Resolved]
  - Face injury [Recovered/Resolved]
  - Depression [Not Recovered/Not Resolved]
  - Somnolence [Recovered/Resolved]
  - Urinary tract infection [Recovered/Resolved]

NARRATIVE: CASE EVENT DATE: 201510
